FAERS Safety Report 5726221-3 (Version None)
Quarter: 2008Q2

REPORT INFORMATION
  Report Type: 
  Country: None (occurrence: None)
  Receive Date: 20080502
  Receipt Date: 20080425
  Transmission Date: 20081010
  Serious: Yes (Hospitalization, Other)
  Sender: FDA-Public Use
  Company Number: BR-AVENTIS-200813410GDDC

PATIENT
  Age: 19 Year
  Sex: Female
  Weight: 65 kg

DRUGS (7)
  1. LANTUS [Suspect]
     Route: 058
     Dates: start: 20040101, end: 20060101
  2. LANTUS [Suspect]
     Route: 058
     Dates: start: 20080201
  3. LANTUS [Suspect]
     Route: 058
  4. LANTUS [Suspect]
     Route: 058
  5. OPTIPEN (INSULIN PUMP) [Suspect]
  6. NOVORAPID [Concomitant]
  7. HUMALOG [Concomitant]

REACTIONS (6)
  - BLOOD GLUCOSE FLUCTUATION [None]
  - DEHYDRATION [None]
  - HYPERGLYCAEMIA [None]
  - HYPOGLYCAEMIA [None]
  - HYPOGLYCAEMIC COMA [None]
  - KETOACIDOSIS [None]
